FAERS Safety Report 9517814 (Version 1)
Quarter: 2013Q3

REPORT INFORMATION
  Report Type: Spontaneous
  Country: US (occurrence: None)
  Receive Date: 20130910
  Receipt Date: 20130910
  Transmission Date: 20140515
  Serious: No
  Sender: FDA-Public Use
  Company Number: None

PATIENT
  Age: 23 Year
  Sex: Male
  Weight: 130.18 kg

DRUGS (1)
  1. INVEGA [Suspect]
     Indication: SCHIZOAFFECTIVE DISORDER
     Dosage: 3 MG 1/2 OF 1 6MG PILL ONCE ORAL
     Route: 048
     Dates: start: 20120302, end: 20130209

REACTIONS (5)
  - Cardiac disorder [None]
  - Tremor [None]
  - Product coating issue [None]
  - Product solubility abnormal [None]
  - Muscle twitching [None]
